FAERS Safety Report 7440247-3 (Version None)
Quarter: 2011Q2

REPORT INFORMATION
  Report Type: 
  Country: None (occurrence: None)
  Receive Date: 20110427
  Receipt Date: 20100504
  Transmission Date: 20111010
  Serious: Yes (Other)
  Sender: FDA-Public Use
  Company Number: US-PFIZER INC-2010058353

PATIENT
  Sex: Female

DRUGS (5)
  1. ZITHROMAX [Suspect]
  2. AVELOX [Suspect]
  3. PENICILLIN G POTASSIUM [Suspect]
  4. TETRACYCLINE HCL [Suspect]
  5. KEFLEX [Suspect]

REACTIONS (1)
  - DRUG HYPERSENSITIVITY [None]
